FAERS Safety Report 4571141-3 (Version None)
Quarter: 2005Q1

REPORT INFORMATION
  Report Type: 
  Country: None (occurrence: None)
  Receive Date: 20050202
  Receipt Date: 20050125
  Transmission Date: 20050727
  Serious: Yes (Death, Other)
  Sender: FDA-Public Use
  Company Number: 2005019468

PATIENT
  Sex: Male
  Weight: 80 kg

DRUGS (4)
  1. ZELDOX (CAPSULES) (ZIPRASIDONE) [Suspect]
     Indication: SCHIZOPHRENIA
     Dosage: ORAL
     Route: 048
     Dates: end: 20041201
  2. ETHANOL (ETHANOL) [Suspect]
     Indication: ILL-DEFINED DISORDER
     Dates: end: 20041201
  3. CANDESARTAN CILEXETIL [Concomitant]
  4. METOPROLOL TARTRATE [Concomitant]

REACTIONS (5)
  - BLOOD ALCOHOL INCREASED [None]
  - CARDIAC DISORDER [None]
  - CARDIOMEGALY [None]
  - HEPATIC STEATOSIS [None]
  - MYOCARDIAL FIBROSIS [None]
